FAERS Safety Report 9691380 (Version 1)
Quarter: 2013Q4

REPORT INFORMATION
  Report Type: Spontaneous
  Country: CA (occurrence: CA)
  Receive Date: 20131115
  Receipt Date: 20131115
  Transmission Date: 20140711
  Serious: Yes (Hospitalization)
  Sender: FDA-Public Use
  Company Number: CA-ASTRAZENECA-2013SE82256

PATIENT
  Age: 87 Year
  Sex: Female
  Weight: 50 kg

DRUGS (6)
  1. SEROQUEL [Suspect]
     Route: 048
  2. SERTRALINE [Suspect]
     Route: 048
  3. LORAZEPAM [Suspect]
     Route: 048
  4. DIDROCAL [Concomitant]
  5. HYDROCHLOROTHIAZIDE [Concomitant]
  6. SLOW K [Concomitant]

REACTIONS (2)
  - Fall [Unknown]
  - Hip fracture [Unknown]
